FAERS Safety Report 8881660 (Version 2)
Quarter: 2012Q4

REPORT INFORMATION
  Report Type: 
  Country: MY (occurrence: MY)
  Receive Date: 20121102
  Receipt Date: 20121105
  Transmission Date: 20130627
  Serious: Yes (Other)
  Sender: FDA-Public Use
  Company Number: PHHY2012MY098375

PATIENT
  Age: 55 Year
  Sex: Female

DRUGS (7)
  1. AMITRIPTYLINE [Suspect]
     Indication: DEPRESSION
     Dosage: 25 mg, QD
     Route: 048
  2. CAPTOPRIL [Concomitant]
     Dosage: 25 mg, TID
     Route: 048
  3. FELODIPINE [Concomitant]
     Dosage: 10 mg, QD
  4. ATENOLOL [Concomitant]
     Dosage: 50 mg, QD
  5. METFORMIN [Concomitant]
     Dosage: 1 g, BID
  6. GLICLAZIDE [Concomitant]
     Dosage: 80 mg, BID
  7. LOVASTATIN [Concomitant]
     Dosage: 40 mg, QD

REACTIONS (7)
  - Adjustment disorder [Unknown]
  - Hypomania [Unknown]
  - Elevated mood [Unknown]
  - Increased appetite [Unknown]
  - Somnolence [Unknown]
  - Inappropriate affect [Unknown]
  - Delusion [Unknown]
